FAERS Safety Report 8163083-1 (Version None)
Quarter: 2012Q1

REPORT INFORMATION
  Report Type: 
  Country: None (occurrence: None)
  Receive Date: 20120224
  Receipt Date: 20120214
  Transmission Date: 20120608
  Serious: Yes (Death)
  Sender: FDA-Public Use
  Company Number: US-VIIV HEALTHCARE LIMITED-B0678306A

PATIENT
  Age: 52 Year
  Sex: Male
  Weight: 57.7 kg

DRUGS (16)
  1. TRAZODONE HCL [Concomitant]
     Indication: INSOMNIA
     Route: 048
     Dates: start: 20090306, end: 20100918
  2. ALBUTEROL INHALER [Concomitant]
     Indication: CHRONIC OBSTRUCTIVE PULMONARY DISEASE
     Route: 055
     Dates: start: 20080131, end: 20100918
  3. STARLIX [Concomitant]
     Indication: TYPE 2 DIABETES MELLITUS
     Route: 048
     Dates: start: 20080113, end: 20100918
  4. BACTRIM DS [Concomitant]
     Indication: ANTIFUNGAL PROPHYLAXIS
     Route: 048
     Dates: start: 20090309, end: 20100918
  5. XANAX [Concomitant]
     Indication: ANXIETY
     Route: 048
     Dates: start: 20080205, end: 20100918
  6. VICODIN ES [Concomitant]
     Indication: ABDOMINAL PAIN
     Route: 048
     Dates: start: 20081002, end: 20100918
  7. PREVACID [Concomitant]
     Indication: GASTROOESOPHAGEAL REFLUX DISEASE
     Route: 048
     Dates: start: 20090319, end: 20100918
  8. SELZENTRY [Suspect]
     Indication: HIV INFECTION
     Dosage: 600MG PER DAY
     Route: 048
     Dates: start: 20090219, end: 20100918
  9. TRUVADA [Suspect]
     Indication: HIV INFECTION
     Dosage: 1TAB PER DAY
     Route: 048
     Dates: start: 20090219, end: 20100918
  10. LANTUS [Concomitant]
     Indication: TYPE 2 DIABETES MELLITUS
     Route: 058
     Dates: start: 20080904, end: 20100918
  11. BENTYL [Concomitant]
     Indication: IRRITABLE BOWEL SYNDROME
     Route: 048
     Dates: start: 20081030, end: 20100918
  12. INTELENCE [Suspect]
     Indication: HIV INFECTION
     Dosage: 400MG PER DAY
     Route: 048
     Dates: start: 20090219, end: 20100918
  13. LEXAPRO [Concomitant]
     Indication: DEPRESSION
     Route: 048
     Dates: start: 20080324, end: 20100918
  14. VITAMIN B-12 [Concomitant]
     Indication: FATIGUE
     Route: 030
     Dates: start: 20080131, end: 20100918
  15. ISENTRESS [Suspect]
     Indication: HIV INFECTION
     Dosage: 800MG PER DAY
     Route: 065
     Dates: start: 20090219, end: 20100918
  16. SINGULAIR [Concomitant]
     Indication: CHRONIC OBSTRUCTIVE PULMONARY DISEASE
     Route: 048
     Dates: start: 20080131, end: 20100918

REACTIONS (1)
  - PANCREATIC CARCINOMA [None]
